FAERS Safety Report 8132856-3 (Version None)
Quarter: 2012Q1

REPORT INFORMATION
  Report Type: 
  Country: None (occurrence: None)
  Receive Date: 20120207
  Receipt Date: 20120124
  Transmission Date: 20120608
  Serious: Yes (Life-Threatening, Other)
  Sender: FDA-Public Use
  Company Number: JP-2012-10245

PATIENT
  Age: 69 Year
  Sex: Female
  Weight: 41 kg

DRUGS (8)
  1. TAKEPRON (LANSOPRAZOLE) ORODISPERSIBLE TABLET [Concomitant]
  2. MAGNESIUM OXIDE (MAGNESIUM OXIDE) [Concomitant]
  3. ASPIRIN [Concomitant]
  4. PLETAL [Suspect]
     Indication: BRADYCARDIA
     Dosage: 100 MG MILLIGRAM(S), DAILY DOSE, ORAL, 200 MG MILLIGRAM(S), DAILY DOSE, ORAL
     Route: 048
     Dates: start: 20111220, end: 20111220
  5. PLETAL [Suspect]
     Indication: BRADYCARDIA
     Dosage: 100 MG MILLIGRAM(S), DAILY DOSE, ORAL, 200 MG MILLIGRAM(S), DAILY DOSE, ORAL
     Route: 048
     Dates: start: 20111221, end: 20111229
  6. ALDACTONE [Concomitant]
  7. LASIX [Concomitant]
  8. ALPRAZOLAM [Concomitant]

REACTIONS (4)
  - VENTRICULAR FIBRILLATION [None]
  - VENTRICULAR TACHYCARDIA [None]
  - ELECTROCARDIOGRAM QT PROLONGED [None]
  - TORSADE DE POINTES [None]
